FAERS Safety Report 6684001-9 (Version None)
Quarter: 2010Q2

REPORT INFORMATION
  Report Type: 
  Country: None (occurrence: None)
  Receive Date: 20100408
  Receipt Date: 20100118
  Transmission Date: 20101027
  Serious: Yes (Other)
  Sender: FDA-Public Use
  Company Number: COM10-0106

PATIENT
  Age: 74 Year
  Sex: Female

DRUGS (9)
  1. CLONIDINE [Suspect]
     Dosage: 1/2 TABLET P.O. Q.I.D.
     Route: 048
     Dates: start: 20100108
  2. ATENOLOL [Concomitant]
  3. ALBUTEROL [Concomitant]
  4. LASIX [Concomitant]
  5. ATIVAN [Concomitant]
  6. COUMADIN [Concomitant]
  7. BENICOR [Concomitant]
  8. LISINOPRIL [Concomitant]
  9. OXYGEN [Concomitant]

REACTIONS (3)
  - ABDOMINAL PAIN [None]
  - DIZZINESS [None]
  - HEADACHE [None]
